FAERS Safety Report 5393298-7 (Version None)
Quarter: 2007Q3

REPORT INFORMATION
  Report Type: 
  Country: None (occurrence: None)
  Receive Date: 20070723
  Receipt Date: 20070713
  Transmission Date: 20080115
  Serious: Yes (Other)
  Sender: FDA-Public Use
  Company Number: PHEH2006US06681

PATIENT
  Age: 70 Year
  Sex: Female
  Weight: 68.027 kg

DRUGS (4)
  1. ESTRADERM [Suspect]
     Indication: MENOPAUSAL SYMPTOMS
     Dosage: 0.1 MG 1 PATCH 2X PER WEEK
     Route: 062
     Dates: start: 19870701, end: 20010701
  2. PREMARIN [Suspect]
     Indication: MENOPAUSAL SYMPTOMS
     Dosage: UNK, UNK
     Route: 048
     Dates: start: 19770901, end: 19870701
  3. FOSAMAX ONCE WEEKLY [Concomitant]
     Route: 048
  4. PROVERA [Suspect]
     Indication: MENOPAUSAL SYMPTOMS
     Dosage: 10 MG CYCLIC
     Route: 048
     Dates: start: 19760601, end: 19761001

REACTIONS (25)
  - BENIGN BREAST NEOPLASM [None]
  - BIOPSY BREAST ABNORMAL [None]
  - BIOPSY BREAST NORMAL [None]
  - BLOOD CHOLESTEROL INCREASED [None]
  - BLOOD TRIGLYCERIDES INCREASED [None]
  - BONE DENSITOMETRY [None]
  - BONE DENSITY DECREASED [None]
  - BREAST CANCER FEMALE [None]
  - BREAST CANCER IN SITU [None]
  - BREAST CANCER RECURRENT [None]
  - BREAST CYST [None]
  - BREAST MASS [None]
  - CARPAL TUNNEL DECOMPRESSION [None]
  - FIBROCYSTIC BREAST DISEASE [None]
  - GLUCOSE TOLERANCE IMPAIRED [None]
  - HOT FLUSH [None]
  - INTERVERTEBRAL DISC PROTRUSION [None]
  - INTERVERTEBRAL DISC SPACE NARROWING [None]
  - LYMPHADENECTOMY [None]
  - MASTECTOMY [None]
  - OSTEOPENIA [None]
  - PAPILLOMA [None]
  - RADIOTHERAPY [None]
  - SPINAL LAMINECTOMY [None]
  - TYPE 2 DIABETES MELLITUS [None]
